FAERS Safety Report 12979137 (Version 4)
Quarter: 2018Q1

REPORT INFORMATION
  Report Type: Spontaneous
  Country: DE (occurrence: DE)
  Receive Date: 20161128
  Receipt Date: 20180228
  Transmission Date: 20180508
  Serious: Yes (Life-Threatening, Hospitalization, Other)
  Sender: FDA-Public Use
  Company Number: DE-GLAXOSMITHKLINE-DE2016GSK173742

PATIENT
  Age: 23 Year
  Sex: Male

DRUGS (5)
  1. PHENPROCOUMON [Suspect]
     Active Substance: PHENPROCOUMON
     Indication: SUICIDE ATTEMPT
     Dosage: 31.5 MG, SINGLE, INGESTION AROUND 7 PM
     Route: 048
  2. DICLOFENAC [Suspect]
     Active Substance: DICLOFENAC
     Indication: SUICIDE ATTEMPT
     Dosage: 1425 MG, SINGLE, 1425 MG MILLIGRAM(S) EVERY DAY
     Route: 048
  3. RIVAROXABAN [Suspect]
     Active Substance: RIVAROXABAN
     Indication: DEEP VEIN THROMBOSIS
     Dosage: 1960 MG, UNK
     Route: 048
  4. METAMIZOLE [Suspect]
     Active Substance: METAMIZOLE
     Indication: SUICIDE ATTEMPT
     Dosage: 21000 MG, UNK, 21000 MG MILLIGRAM(S) EVERY
     Route: 048
  5. RIVAROXABAN [Suspect]
     Active Substance: RIVAROXABAN
     Indication: SUICIDE ATTEMPT

REACTIONS (13)
  - Overdose [Recovered/Resolved]
  - Vomiting [Recovered/Resolved]
  - Platelet dysfunction [Unknown]
  - Haematuria [Unknown]
  - Suicide attempt [Recovering/Resolving]
  - Intentional overdose [Recovered/Resolved]
  - Poisoning [Unknown]
  - Coagulation test abnormal [Recovered/Resolved]
  - Anticoagulation drug level above therapeutic [Recovered/Resolved]
  - Toxicity to various agents [Recovered/Resolved]
  - Haematuria [Recovered/Resolved]
  - International normalised ratio increased [Unknown]
  - Coagulopathy [Recovering/Resolving]
